FAERS Safety Report 9093645 (Version 1)
Quarter: 2013Q1

REPORT INFORMATION
  Report Type: Report from Study
  Country: FR (occurrence: FR)
  Receive Date: 20130201
  Receipt Date: 20130201
  Transmission Date: 20140127
  Serious: Yes (Hospitalization)
  Sender: FDA-Public Use
  Company Number: FR-PFIZER INC-2013036733

PATIENT
  Age: 80 Year
  Sex: Male

DRUGS (1)
  1. TORISEL [Suspect]
     Dosage: 175 MG TO 25MG WEEKLY
     Dates: start: 20120204, end: 20121115

REACTIONS (2)
  - Pulmonary embolism [Unknown]
  - Superinfection [Unknown]
